FAERS Safety Report 6212361-1 (Version None)
Quarter: 2009Q2

REPORT INFORMATION
  Report Type: 
  Country: None (occurrence: None)
  Receive Date: 20090529
  Receipt Date: 20090518
  Transmission Date: 20091009
  Serious: Yes (Hospitalization)
  Sender: FDA-Public Use
  Company Number: 2009AL003510

PATIENT
  Age: 69 Year
  Sex: Male

DRUGS (4)
  1. DICLOFENAC SODIUM [Suspect]
     Dosage: PO
     Route: 048
  2. ACETYLSALICYLIC ACID SRT [Concomitant]
  3. LISINOPRIL [Concomitant]
  4. STILBOESTROL [Concomitant]

REACTIONS (1)
  - ANGIOEDEMA [None]
